FAERS Safety Report 5168976-5 (Version None)
Quarter: 2006Q4

REPORT INFORMATION
  Report Type: 
  Country: None (occurrence: None)
  Receive Date: 20061211
  Receipt Date: 20061128
  Transmission Date: 20070319
  Serious: Yes (Other)
  Sender: FDA-Public Use
  Company Number: DE-PURDUE-DEU_2006_0002735

PATIENT
  Age: 70 Year
  Sex: Female
  Weight: 55 kg

DRUGS (1)
  1. OXYCODONE HCL/NALOXONE HCL CR TAB 10/5MG [Suspect]
     Indication: PAIN
     Dosage: 10 MG, BID
     Route: 048
     Dates: start: 20061010, end: 20061109

REACTIONS (3)
  - FALL [None]
  - SKIN LACERATION [None]
  - SYNCOPE [None]
